FAERS Safety Report 15017574 (Version 4)
Quarter: 2018Q2

REPORT INFORMATION
  Report Type: Spontaneous
  Country: JP (occurrence: JP)
  Receive Date: 20180615
  Receipt Date: 20180622
  Transmission Date: 20180711
  Serious: Yes (Other)
  Sender: FDA-Public Use
  Company Number: PHJP2018JP012335

PATIENT
  Age: 53 Year
  Sex: Female

DRUGS (5)
  1. METENOLONE [Concomitant]
     Active Substance: METHENOLONE ENANTHATE
     Indication: PRODUCT USED FOR UNKNOWN INDICATION
     Dosage: UNK
     Route: 065
  2. METHYLPREDNISOLON [Concomitant]
     Active Substance: METHYLPREDNISOLONE
     Indication: PRODUCT USED FOR UNKNOWN INDICATION
     Dosage: UNK
     Route: 065
  3. REVOLADE TAB [Suspect]
     Active Substance: ELTROMBOPAG
     Indication: APLASTIC ANAEMIA
     Dosage: UNK
     Route: 048
  4. NEORAL [Suspect]
     Active Substance: CYCLOSPORINE
     Dosage: UNK, RESUMED FROM AN UNKNOWN DATE (DAY 193)
     Route: 048
  5. NEORAL [Suspect]
     Active Substance: CYCLOSPORINE
     Indication: APLASTIC ANAEMIA
     Dosage: UNK, UNKNOWN START DATE (DAY 24) AND DISCONTINUED ON DAY 135
     Route: 048

REACTIONS (15)
  - Headache [Recovered/Resolved]
  - Haptoglobin decreased [Unknown]
  - Refractoriness to platelet transfusion [Unknown]
  - Therapeutic response decreased [Unknown]
  - Granulocytes abnormal [Unknown]
  - Blood lactate dehydrogenase increased [Unknown]
  - Cerebral haemorrhage [Recovered/Resolved]
  - Blood count abnormal [Unknown]
  - White blood cell count decreased [Unknown]
  - Red blood cell count abnormal [Unknown]
  - Product use in unapproved indication [Unknown]
  - Anti-HLA antibody test positive [Unknown]
  - Paroxysmal nocturnal haemoglobinuria [Unknown]
  - Reticulocyte count decreased [Unknown]
  - Blood bilirubin unconjugated increased [Unknown]

NARRATIVE: CASE EVENT DATE: 201709
